FAERS Safety Report 19582094 (Version 1)
Quarter: 2021Q3

REPORT INFORMATION
  Report Type: Spontaneous
  Country: US (occurrence: US)
  Receive Date: 20210719
  Receipt Date: 20210719
  Transmission Date: 20211014
  Serious: No
  Sender: FDA-Public Use
  Company Number: US-GALDERMA-US2021012544

PATIENT
  Age: 47 Year
  Sex: Male

DRUGS (6)
  1. PROACTIV MD BALANCING TONER [Concomitant]
     Active Substance: COSMETICS
     Indication: ACNE
     Dosage: 2 OR MORE TIMES A DAY
     Route: 061
     Dates: start: 20210430, end: 20210518
  2. PROACTIV MD DAILY OIL CONTROL SPF 30 [Suspect]
     Active Substance: AVOBENZONE\OCTISALATE\OCTOCRYLENE
     Indication: ACNE
     Dosage: 2 OR MORE TIMES A DAY
     Route: 061
     Dates: start: 20210430, end: 20210518
  3. PROACTIV MD ULTRA GENTLE FOAMING CLEANSER [Concomitant]
     Indication: ACNE
     Dosage: 2 OR MORE TIMES A DAY
     Route: 061
     Dates: start: 20210430, end: 20210518
  4. PROACTIV EYE BRIGHTENING SERUM [Concomitant]
     Active Substance: COSMETICS
     Indication: ACNE
     Dosage: 2 OR MORE TIMES A DAY
     Route: 061
     Dates: start: 20210430, end: 20210518
  5. PROACTIV MD ADAPALENE ACNE TREATMENT [Suspect]
     Active Substance: ADAPALENE
     Indication: ACNE
     Dosage: MORNING AND NIGHT
     Route: 061
     Dates: start: 20210430, end: 20210518
  6. ZINC. [Concomitant]
     Active Substance: ZINC
     Indication: PRODUCT USED FOR UNKNOWN INDICATION

REACTIONS (5)
  - Rash erythematous [Recovering/Resolving]
  - Skin burning sensation [Recovering/Resolving]
  - Erythema [Recovering/Resolving]
  - Overdose [Recovered/Resolved]
  - Inappropriate schedule of product administration [Recovered/Resolved]

NARRATIVE: CASE EVENT DATE: 20210430
